FAERS Safety Report 8010749-X (Version None)
Quarter: 2011Q4

REPORT INFORMATION
  Report Type: 
  Country: None (occurrence: None)
  Receive Date: 20111228
  Receipt Date: 20111226
  Transmission Date: 20120403
  Serious: Yes (Death)
  Sender: FDA-Public Use
  Company Number: JP-BAYER-2011-123122

PATIENT
  Age: 75 Year
  Sex: Male

DRUGS (1)
  1. ASPIRIN [Suspect]
     Dosage: UNK
     Route: 048
     Dates: start: 20090901, end: 20100401

REACTIONS (1)
  - INTRAVENTRICULAR HAEMORRHAGE [None]
